FAERS Safety Report 9246964 (Version 1)
Quarter: 2013Q2

REPORT INFORMATION
  Report Type: Spontaneous
  Country: US (occurrence: US)
  Receive Date: 20130422
  Receipt Date: 20130422
  Transmission Date: 20140414
  Serious: Yes (Other)
  Sender: FDA-Public Use
  Company Number: US-AMGEN-USASP2013027647

PATIENT
  Age: 60 Year
  Sex: Female

DRUGS (1)
  1. ENBREL [Suspect]
     Indication: RHEUMATOID ARTHRITIS
     Dosage: UNK
     Dates: start: 200905, end: 2009

REACTIONS (6)
  - Breast cancer [Not Recovered/Not Resolved]
  - Malignant melanoma [Recovered/Resolved]
  - Energy increased [Recovered/Resolved]
  - Fatigue [Recovered/Resolved]
  - Hypothyroidism [Recovered/Resolved]
  - Hyperthyroidism [Recovered/Resolved]
